FAERS Safety Report 8258530-0 (Version None)
Quarter: 2012Q2

REPORT INFORMATION
  Report Type: 
  Country: None (occurrence: None)
  Receive Date: 20120404
  Receipt Date: 20120329
  Transmission Date: 20120825
  Serious: Yes (Death, Hospitalization, Other)
  Sender: FDA-Public Use
  Company Number: US-CELGENEUS-163-21880-11053399

PATIENT
  Sex: Male

DRUGS (16)
  1. FUROSEMIDE [Concomitant]
     Dosage: 20 MILLIGRAM
     Route: 065
  2. SOLU-MEDROL [Concomitant]
     Route: 065
  3. ARANESP [Concomitant]
     Dosage: 300 MICROGRAM
     Route: 065
     Dates: start: 20050920, end: 20110424
  4. SYNTHROID [Concomitant]
     Dosage: 100 MICROGRAM
     Route: 065
  5. VITAMIN B-12 [Concomitant]
     Dosage: .5 MILLIGRAM
     Route: 058
     Dates: start: 20051003, end: 20110413
  6. PLAVIX [Concomitant]
     Dosage: 75 MILLIGRAM
     Route: 065
  7. DUONEB [Concomitant]
     Route: 065
  8. ZOCOR [Concomitant]
     Route: 065
  9. ALLOPURINOL [Concomitant]
     Dosage: 40 MILLIGRAM
     Route: 065
     Dates: start: 20110428
  10. MULTAQ [Concomitant]
     Dosage: 400 MILLIGRAM
     Route: 065
  11. COZAAR [Concomitant]
     Route: 065
  12. REVLIMID [Suspect]
     Dosage: 10 MILLIGRAM
     Route: 048
     Dates: start: 20110426
  13. RED BLOOD CELLS [Concomitant]
     Dosage: 2 UNITS
     Route: 041
     Dates: start: 20110329, end: 20110329
  14. ASPIRIN [Concomitant]
     Route: 065
  15. NEXIUM [Concomitant]
     Dosage: 40 MILLIGRAM
     Route: 065
  16. AMARYL [Concomitant]
     Dosage: 1 MILLIGRAM
     Route: 065

REACTIONS (6)
  - RENAL TUBULAR NECROSIS [None]
  - PNEUMONIA [None]
  - BRONCHITIS [None]
  - CARDIAC FAILURE CONGESTIVE [None]
  - COR PULMONALE [None]
  - CHRONIC OBSTRUCTIVE PULMONARY DISEASE [None]
